FAERS Safety Report 22629603 (Version 1)
Quarter: 2023Q2

REPORT INFORMATION
  Report Type: Spontaneous
  Country: GB (occurrence: GB)
  Receive Date: 20230622
  Receipt Date: 20230622
  Transmission Date: 20230721
  Serious: Yes (Other)
  Sender: FDA-Public Use
  Company Number: GB-MHRA-MED-202306172330068830-HZKDL

PATIENT
  Sex: Female
  Weight: 46 kg

DRUGS (7)
  1. TOFACITINIB CITRATE [Suspect]
     Active Substance: TOFACITINIB CITRATE
     Indication: Juvenile idiopathic arthritis
     Dosage: 5 MG, 2X/DAY
     Dates: start: 20220315, end: 20230615
  2. AMITRIPTYLINE [Concomitant]
     Active Substance: AMITRIPTYLINE
     Indication: Complex regional pain syndrome
  3. GABAPENTIN [Concomitant]
     Active Substance: GABAPENTIN
     Indication: Complex regional pain syndrome
  4. IBUPROFEN [Concomitant]
     Active Substance: IBUPROFEN
     Indication: Juvenile idiopathic arthritis
  5. MELOXICAM [Concomitant]
     Active Substance: MELOXICAM
     Indication: Juvenile idiopathic arthritis
     Dosage: UNK
     Dates: start: 20220101, end: 20221101
  6. PIROXICAM [Concomitant]
     Active Substance: PIROXICAM
     Indication: Juvenile idiopathic arthritis
     Dosage: UNK
     Dates: start: 20170101, end: 20220101
  7. PREDNISONE [Concomitant]
     Active Substance: PREDNISONE
     Indication: Juvenile idiopathic arthritis

REACTIONS (1)
  - Gastrointestinal perforation [Recovering/Resolving]

NARRATIVE: CASE EVENT DATE: 20221115
